FAERS Safety Report 15661790 (Version 1)
Quarter: 2018Q4

REPORT INFORMATION
  Report Type: Spontaneous
  Country: DE (occurrence: DE)
  Receive Date: 20181127
  Receipt Date: 20181127
  Transmission Date: 20190205
  Serious: Yes (Other)
  Sender: FDA-Public Use
  Company Number: DE-AMGEN-DEUSP2018166880

PATIENT
  Age: 54 Year
  Sex: Male

DRUGS (3)
  1. SEVELAMER [Concomitant]
     Active Substance: SEVELAMER
     Dosage: UNK
  2. MIMPARA [Suspect]
     Active Substance: CINACALCET HYDROCHLORIDE
     Indication: PRODUCT USED FOR UNKNOWN INDICATION
     Dosage: UNK
     Route: 065
  3. RENVELA [Concomitant]
     Active Substance: SEVELAMER CARBONATE
     Dosage: UNK

REACTIONS (1)
  - Erectile dysfunction [Unknown]
